FAERS Safety Report 18353966 (Version 1)
Quarter: 2020Q4

REPORT INFORMATION
  Report Type: Spontaneous
  Country: CN (occurrence: CN)
  Receive Date: 20201006
  Receipt Date: 20201006
  Transmission Date: 20210114
  Serious: Yes (Life-Threatening, Hospitalization)
  Sender: FDA-Public Use
  Company Number: CN-BAXTER-2020BAX020320

PATIENT
  Age: 39 Year
  Sex: Female
  Weight: 54 kg

DRUGS (12)
  1. 0.9% SODIUM CHLORIDE INJECTION [Suspect]
     Active Substance: SODIUM CHLORIDE
     Indication: MEDICATION DILUTION
     Dosage: TC REGIMEN, FIRST CYCLE, ENDOXAN + 0.9% SODIUM CHLORIDE
     Route: 041
  2. 0.9% SODIUM CHLORIDE INJECTION [Suspect]
     Active Substance: SODIUM CHLORIDE
     Dosage: DOSE RE-INTRODUCED, TAXOTERE + 0.9% SODIUM CHLORIDE
     Route: 041
     Dates: start: 202009
  3. ENDOXAN [Suspect]
     Active Substance: CYCLOPHOSPHAMIDE
     Dosage: TC REGIMEN, SECOND CYCLE, DAY 1, ENDOXAN 950 MG + 0.9% SODIUM CHLORIDE 100 ML
     Route: 041
     Dates: start: 20200918, end: 20200918
  4. 0.9% SODIUM CHLORIDE INJECTION [Suspect]
     Active Substance: SODIUM CHLORIDE
     Dosage: TC REGIMEN, FIRST CYCLE, TAXOTERE + 0.9% SODIUM CHLORIDE
     Route: 041
  5. ENDOXAN [Suspect]
     Active Substance: CYCLOPHOSPHAMIDE
     Indication: INVASIVE BREAST CARCINOMA
     Dosage: TC REGIMEN, FIRST CYCLE, ENDOXAN + 0.9% SODIUM CHLORIDE
     Route: 041
  6. 0.9% SODIUM CHLORIDE INJECTION [Suspect]
     Active Substance: SODIUM CHLORIDE
     Dosage: TC REGIMEN, SECOND CYCLE, DAY 1, ENDOXAN 950 MG + 0.9% SODIUM CHLORIDE 100 ML
     Route: 041
     Dates: start: 20200918, end: 20200918
  7. 0.9% SODIUM CHLORIDE INJECTION [Suspect]
     Active Substance: SODIUM CHLORIDE
     Dosage: DOSE RE-INTRODUCED, ENDOXAN + 0.9% SODIUM CHLORIDE
     Route: 041
     Dates: start: 202009
  8. TAXOTERE [Suspect]
     Active Substance: DOCETAXEL
     Indication: INVASIVE BREAST CARCINOMA
     Dosage: TC REGIMEN, FIRST CYCLE, TAXOTERE + 0.9% SODIUM CHLORIDE
     Route: 041
  9. ENDOXAN [Suspect]
     Active Substance: CYCLOPHOSPHAMIDE
     Dosage: DOSE RE-INTRODUCED, ENDOXAN + 0.9% SODIUM CHLORIDE
     Route: 041
     Dates: start: 202009
  10. 0.9% SODIUM CHLORIDE INJECTION [Suspect]
     Active Substance: SODIUM CHLORIDE
     Dosage: TC REGIMEN, SECOND CYCLE, DAY 1, TAXOTERE 119 MG + 0.9% SODIUM CHLORIDE 250 ML
     Route: 041
     Dates: start: 20200918, end: 20200918
  11. TAXOTERE [Suspect]
     Active Substance: DOCETAXEL
     Dosage: DOSE RE-INTRODUCED, TAXOTERE + 0.9% SODIUM CHLORIDE
     Route: 041
     Dates: start: 202009
  12. TAXOTERE [Suspect]
     Active Substance: DOCETAXEL
     Dosage: TC REGIMEN, SECOND CYCLE, DAY 1, TAXOTERE 119 MG + 0.9% SODIUM CHLORIDE 250 ML
     Route: 041
     Dates: start: 20200918, end: 20200918

REACTIONS (3)
  - Pyrexia [Recovered/Resolved]
  - Neutrophil count decreased [Unknown]
  - Leukopenia [Unknown]

NARRATIVE: CASE EVENT DATE: 20200920
